FAERS Safety Report 6490818-6 (Version None)
Quarter: 2009Q4

REPORT INFORMATION
  Report Type: 
  Country: None (occurrence: None)
  Receive Date: 20091124
  Receipt Date: 20090420
  Transmission Date: 20100525
  Serious: Yes (Hospitalization, Other)
  Sender: FDA-Public Use
  Company Number: 280248

PATIENT
  Age: 68 Year
  Sex: Female
  Weight: 96.1 kg

DRUGS (1)
  1. HERCEPTIN [Suspect]
     Indication: BREAST CANCER
     Dosage: 584 MG, Q3W, INTRAVENOUS
     Route: 042
     Dates: start: 20080225, end: 20090403

REACTIONS (1)
  - PLEURAL EFFUSION [None]
